FAERS Safety Report 21306790 (Version 1)
Quarter: 2022Q3

REPORT INFORMATION
  Report Type: Report from Study
  Country: FR (occurrence: None)
  Receive Date: 20220908
  Receipt Date: 20220908
  Transmission Date: 20221026
  Serious: Yes (Hospitalization)
  Sender: FDA-Public Use
  Company Number: 2022A304287

PATIENT
  Age: 773 Month
  Sex: Male
  Weight: 76 kg

DRUGS (1)
  1. EVUSHELD [Suspect]
     Active Substance: CILGAVIMAB\TIXAGEVIMAB
     Indication: COVID-19 prophylaxis
     Dosage: TIXAGEVIMAB 150 MG/CILGAVIMAB 150 MG ONCE/SINGLE ADMINISTRATION
     Route: 030
     Dates: start: 20220126

REACTIONS (2)
  - Chronic lymphocytic leukaemia [Unknown]
  - COVID-19 [Unknown]

NARRATIVE: CASE EVENT DATE: 20220429
